FAERS Safety Report 18947711 (Version 1)
Quarter: 2021Q1

REPORT INFORMATION
  Report Type: Report from Study
  Country: CA (occurrence: CA)
  Receive Date: 20210226
  Receipt Date: 20210226
  Transmission Date: 20210420
  Serious: Yes (Other)
  Sender: FDA-Public Use
  Company Number: CA-SHIRE-CA202026467

PATIENT
  Age: 77 Year
  Sex: Female

DRUGS (4)
  1. BENZYDAMINE [Concomitant]
     Active Substance: BENZYDAMINE
     Indication: DRY MOUTH
  2. GAMMAGARD LIQUID [Suspect]
     Active Substance: HUMAN IMMUNOGLOBULIN G
     Dosage: 5 GRAM, 1X/WEEK
     Route: 065
     Dates: start: 20191128
  3. GAMMAGARD LIQUID [Suspect]
     Active Substance: HUMAN IMMUNOGLOBULIN G
     Indication: PRIMARY IMMUNODEFICIENCY SYNDROME
     Dosage: 4 GRAM
     Route: 065
  4. BENZYDAMINE [Concomitant]
     Active Substance: BENZYDAMINE
     Indication: ORAL PAIN
     Dosage: UNK
     Route: 065

REACTIONS (4)
  - Oral pain [Unknown]
  - Blood immunoglobulin G decreased [Not Recovered/Not Resolved]
  - Lower respiratory tract infection [Unknown]
  - Dry mouth [Unknown]
